FAERS Safety Report 9221249 (Version 2)
Quarter: 2013Q2

REPORT INFORMATION
  Report Type: Spontaneous
  Country: US (occurrence: US)
  Receive Date: 20130410
  Receipt Date: 20130503
  Transmission Date: 20140414
  Serious: Yes (Other)
  Sender: FDA-Public Use
  Company Number: US-BIOGENIDEC-2013BI032085

PATIENT
  Sex: Female

DRUGS (7)
  1. AVONEX [Suspect]
     Indication: MULTIPLE SCLEROSIS
     Route: 030
     Dates: start: 20080618, end: 20090401
  2. AVONEX [Suspect]
     Indication: MULTIPLE SCLEROSIS
     Route: 030
     Dates: start: 20100525, end: 20110801
  3. AVONEX [Suspect]
     Indication: MULTIPLE SCLEROSIS
     Route: 030
     Dates: start: 20111208, end: 20120406
  4. AVONEX [Suspect]
     Indication: MULTIPLE SCLEROSIS
     Route: 030
     Dates: start: 20121001
  5. KEPPRA [Concomitant]
  6. DEPAKOTE [Concomitant]
  7. VITAMIN D [Concomitant]
     Dates: end: 2012

REACTIONS (4)
  - Epilepsy [Unknown]
  - Decreased appetite [Unknown]
  - Pruritus [Unknown]
  - Convulsion [Recovered/Resolved]
